FAERS Safety Report 15250887 (Version 1)
Quarter: 2018Q3

REPORT INFORMATION
  Report Type: Spontaneous
  Country: US (occurrence: US)
  Receive Date: 20180807
  Receipt Date: 20180807
  Transmission Date: 20181010
  Serious: No
  Sender: FDA-Public Use
  Company Number: US-PERRIGO-18US000815

PATIENT
  Age: 38 Year
  Sex: Female
  Weight: 99.77 kg

DRUGS (2)
  1. IBUPROFEN. [Suspect]
     Active Substance: IBUPROFEN
     Indication: SWELLING
     Dosage: 400 MG, TWICE IN 3 HOURS
     Route: 048
     Dates: start: 20180123, end: 20180123
  2. IBUPROFEN. [Suspect]
     Active Substance: IBUPROFEN
     Dosage: 200 MG, SINGLE
     Route: 048
     Dates: start: 20180124, end: 20180124

REACTIONS (1)
  - Off label use [Recovered/Resolved]

NARRATIVE: CASE EVENT DATE: 20180123
